FAERS Safety Report 5282395-2 (Version None)
Quarter: 2007Q1

REPORT INFORMATION
  Report Type: 
  Country: None (occurrence: None)
  Receive Date: 20061226
  Receipt Date: 20061023
  Transmission Date: 20070707
  Serious: No
  Sender: FDA-Public Use
  Company Number: PHEH2006US13249

PATIENT
  Age: 67 Year
  Sex: Female

DRUGS (2)
  1. ENABLEX [Suspect]
     Indication: URINARY INCONTINENCE
     Dosage: 7.5 MG, QD, ORAL; 15 MG, QD
     Route: 048
     Dates: start: 20060929, end: 20061012
  2. ENABLEX [Suspect]
     Indication: URINARY INCONTINENCE
     Dosage: 7.5 MG, QD, ORAL; 15 MG, QD
     Route: 048
     Dates: start: 20061013

REACTIONS (1)
  - DRUG INEFFECTIVE [None]
